FAERS Safety Report 9174234 (Version 1)
Quarter: 2013Q1

REPORT INFORMATION
  Report Type: Spontaneous
  Country: US (occurrence: None)
  Receive Date: 20130318
  Receipt Date: 20130318
  Transmission Date: 20140127
  Serious: Yes (Life-Threatening)
  Sender: FDA-Public Use
  Company Number: None

PATIENT
  Age: 89 Year
  Sex: Female
  Weight: 52.16 kg

DRUGS (3)
  1. XARELTO [Suspect]
     Indication: ANTICOAGULANT THERAPY
     Dosage: 1 TAB AT NIGHT
     Dates: start: 201210, end: 201302
  2. PACEMAKER [Concomitant]
  3. DEFIBRILLATOR [Concomitant]

REACTIONS (4)
  - Faeces discoloured [None]
  - Dyspnoea [None]
  - Haemorrhage [None]
  - Blood count abnormal [None]
